FAERS Safety Report 12383992 (Version 2)
Quarter: 2016Q2

REPORT INFORMATION
  Report Type: Spontaneous
  Country: DK (occurrence: DK)
  Receive Date: 20160519
  Receipt Date: 20160523
  Transmission Date: 20160815
  Serious: Yes (Hospitalization)
  Sender: FDA-Public Use
  Company Number: DK-ROCHE-1760219

PATIENT
  Sex: Male
  Weight: 70.4 kg

DRUGS (1)
  1. GAZYVARO [Suspect]
     Active Substance: OBINUTUZUMAB
     Indication: CHRONIC LYMPHOCYTIC LEUKAEMIA
     Route: 065
     Dates: start: 20160517, end: 20160517

REACTIONS (5)
  - Chills [Recovering/Resolving]
  - Nausea [Unknown]
  - Pyrexia [Unknown]
  - Heart rate increased [Unknown]
  - Feeling hot [Unknown]
